FAERS Safety Report 9356042 (Version 2)
Quarter: 2013Q4

REPORT INFORMATION
  Report Type: Spontaneous
  Country: FR (occurrence: FR)
  Receive Date: 20130619
  Receipt Date: 20131024
  Transmission Date: 20140711
  Serious: Yes (Death)
  Sender: FDA-Public Use
  Company Number: FR-EISAI INC-E7389-03901-SPO-FR

PATIENT
  Age: 51 Year
  Sex: Female
  Weight: 69 kg

DRUGS (8)
  1. HALAVEN [Suspect]
     Indication: BREAST CANCER
     Dosage: 1.8 MG
     Route: 041
     Dates: start: 20130329, end: 2013
  2. HALAVEN [Suspect]
     Dosage: 2 MG
     Route: 041
     Dates: start: 2013, end: 20130531
  3. PLAVIX [Concomitant]
  4. KARDEGIC [Concomitant]
  5. ACEBUTOLOL [Concomitant]
  6. ATORVASTATINE [Concomitant]
  7. ALPRAZOLAM [Concomitant]
  8. ZOMETA [Concomitant]

REACTIONS (1)
  - Acute respiratory distress syndrome [Fatal]
